FAERS Safety Report 9825463 (Version 1)
Quarter: 2014Q1

REPORT INFORMATION
  Report Type: Spontaneous
  Country: US (occurrence: US)
  Receive Date: 20140117
  Receipt Date: 20140117
  Transmission Date: 20141002
  Serious: Yes (Other)
  Sender: FDA-Public Use
  Company Number: US-PFIZER INC-2014015562

PATIENT
  Age: 24 Year
  Sex: Female
  Weight: 52.15 kg

DRUGS (8)
  1. CHANTIX [Suspect]
     Indication: SMOKING CESSATION THERAPY
     Dosage: UNK
     Dates: start: 2013, end: 2013
  2. LITHIUM [Concomitant]
     Indication: BIPOLAR DISORDER
     Dosage: UNK
  3. CYTOMEL [Concomitant]
     Indication: PROPHYLAXIS
     Dosage: UNK
  4. ATIVAN [Concomitant]
     Indication: INSOMNIA
     Dosage: UNK
  5. LAMICTAL [Concomitant]
     Indication: BIPOLAR DISORDER
     Dosage: UNK
  6. LAMICTAL [Concomitant]
     Indication: HALLUCINATION
  7. CLOZAPINE [Concomitant]
     Indication: BIPOLAR DISORDER
     Dosage: UNK
  8. CLOZAPINE [Concomitant]
     Indication: HALLUCINATION

REACTIONS (1)
  - Depression [Unknown]
